FAERS Safety Report 18467494 (Version 1)
Quarter: 2020Q4

REPORT INFORMATION
  Report Type: Spontaneous
  Country: US (occurrence: US)
  Receive Date: 20201104
  Receipt Date: 20201104
  Transmission Date: 20210114
  Serious: Yes (Other)
  Sender: FDA-Public Use
  Company Number: None

PATIENT
  Age: 65 Year
  Sex: Female

DRUGS (19)
  1. LASIX [Concomitant]
     Active Substance: FUROSEMIDE
  2. LOVENOX [Concomitant]
     Active Substance: ENOXAPARIN SODIUM
  3. ZOFRAN [Concomitant]
     Active Substance: ONDANSETRON HYDROCHLORIDE
  4. TRAMADOL HCL [Concomitant]
     Active Substance: TRAMADOL HYDROCHLORIDE
  5. ELIQUIS [Concomitant]
     Active Substance: APIXABAN
  6. NEURONTIN [Concomitant]
     Active Substance: GABAPENTIN
  7. BENADRYL [Concomitant]
     Active Substance: DIPHENHYDRAMINE HYDROCHLORIDE
  8. LYNPARZA [Suspect]
     Active Substance: OLAPARIB
     Indication: BREAST CANCER
     Route: 048
     Dates: start: 20200109
  9. PEPCID [Concomitant]
     Active Substance: FAMOTIDINE
  10. SIMVASTATIN. [Concomitant]
     Active Substance: SIMVASTATIN
  11. ABILIFY [Concomitant]
     Active Substance: ARIPIPRAZOLE
  12. POTASSIUM [Concomitant]
     Active Substance: POTASSIUM
  13. TEMAZEPAM. [Concomitant]
     Active Substance: TEMAZEPAM
  14. FERROUS SULFATE. [Concomitant]
     Active Substance: FERROUS SULFATE
  15. TOPAMAX [Concomitant]
     Active Substance: TOPIRAMATE
  16. TRAZODONE HYDROCHLORIDE. [Concomitant]
     Active Substance: TRAZODONE HYDROCHLORIDE
  17. CHOLESTYRAMINE. [Concomitant]
     Active Substance: CHOLESTYRAMINE
  18. DEXAMETHASONE. [Concomitant]
     Active Substance: DEXAMETHASONE
  19. LOMOTIL [Concomitant]
     Active Substance: ATROPINE SULFATE\DIPHENOXYLATE HYDROCHLORIDE

REACTIONS (1)
  - Thrombosis [None]

NARRATIVE: CASE EVENT DATE: 20201102
